FAERS Safety Report 7803271-4 (Version None)
Quarter: 2011Q4

REPORT INFORMATION
  Report Type: 
  Country: None (occurrence: None)
  Receive Date: 20111007
  Receipt Date: 20110926
  Transmission Date: 20120403
  Serious: Yes (Other)
  Sender: FDA-Public Use
  Company Number: PHHY2011ES86284

PATIENT
  Age: 68 Year
  Sex: Female

DRUGS (6)
  1. TRAMADOL HCL [Suspect]
     Dates: start: 20110413, end: 20110418
  2. LISINOPRIL [Concomitant]
     Indication: HYPERTENSION
     Dates: start: 20110401
  3. XELODA [Suspect]
     Indication: GASTRIC CANCER
     Dates: start: 20110401
  4. FUROSEMIDE [Suspect]
     Indication: CARDIAC FAILURE CONGESTIVE
     Dates: start: 20110413, end: 20110418
  5. CHLORTHALIDONE [Suspect]
     Indication: HYPERTENSION
     Dosage: 50 MG,
     Route: 048
     Dates: start: 20110401, end: 20110418
  6. MORPHINE [Suspect]
     Indication: PAIN
     Dates: start: 20110413, end: 20110418

REACTIONS (5)
  - MUSCULAR WEAKNESS [None]
  - DELIRIUM [None]
  - CONFUSIONAL STATE [None]
  - LETHARGY [None]
  - HYPOKALAEMIA [None]
